FAERS Safety Report 12162119 (Version 1)
Quarter: 2016Q1

REPORT INFORMATION
  Report Type: Spontaneous
  Country: BR (occurrence: BR)
  Receive Date: 20160309
  Receipt Date: 20160309
  Transmission Date: 20160526
  Serious: Yes (Hospitalization)
  Sender: FDA-Public Use
  Company Number: BR-ELI_LILLY_AND_COMPANY-BR201507006242

PATIENT
  Sex: Female
  Weight: 84 kg

DRUGS (3)
  1. HUMULIN N [Suspect]
     Active Substance: INSULIN HUMAN
     Indication: TYPE 1 DIABETES MELLITUS
     Dosage: UNK, UNKNOWN
     Route: 058
     Dates: start: 2009
  2. HUMULIN R [Suspect]
     Active Substance: INSULIN HUMAN
     Indication: PRODUCT USED FOR UNKNOWN INDICATION
     Dosage: 10 IU, PRN
     Route: 065
     Dates: start: 2013
  3. HUMULIN N [Suspect]
     Active Substance: INSULIN HUMAN
     Dosage: 38 IU, OTHER
     Route: 058
     Dates: start: 2009

REACTIONS (5)
  - Weight increased [Unknown]
  - Exposure during pregnancy [Unknown]
  - Hypertension [Recovered/Resolved]
  - Exposure during breast feeding [Unknown]
  - Polyhydramnios [Unknown]
